FAERS Safety Report 7270087-X (Version None)
Quarter: 2011Q1

REPORT INFORMATION
  Report Type: 
  Country: None (occurrence: None)
  Receive Date: 20110125
  Receipt Date: 20110125
  Transmission Date: 20110831
  Serious: Yes (Other)
  Sender: FDA-Public Use
  Company Number: None

PATIENT
  Age: 36 Year
  Sex: Female
  Weight: 72.5755 kg

DRUGS (1)
  1. CREST W/ FLUORIDE [Suspect]
     Indication: SENSITIVITY OF TEETH
     Dosage: 1/4 TSP. 1-2 X PER DAY DENTAL
     Route: 004
     Dates: start: 20100705, end: 20100715

REACTIONS (1)
  - ORAL MUCOSAL EXFOLIATION [None]
